FAERS Safety Report 9452746 (Version 1)
Quarter: 2013Q3

REPORT INFORMATION
  Report Type: Spontaneous
  Country: US (occurrence: None)
  Receive Date: 20130808
  Receipt Date: 20130808
  Transmission Date: 20140515
  Serious: Yes (Life-Threatening, Hospitalization)
  Sender: FDA-Public Use
  Company Number: None

PATIENT
  Age: 62 Year
  Sex: Male
  Weight: 109.5 kg

DRUGS (1)
  1. LISINOPRIL [Suspect]
     Indication: HYPERTENSION
     Route: 048
     Dates: start: 20130122, end: 20130724

REACTIONS (8)
  - Respiratory failure [None]
  - Angioedema [None]
  - Alcohol withdrawal syndrome [None]
  - Hypertension [None]
  - Left ventricular hypertrophy [None]
  - Deep vein thrombosis [None]
  - Renal failure acute [None]
  - Hypovolaemia [None]
